FAERS Safety Report 5213220-3 (Version None)
Quarter: 2007Q1

REPORT INFORMATION
  Report Type: 
  Country: None (occurrence: None)
  Receive Date: 20070119
  Receipt Date: 20070115
  Transmission Date: 20070707
  Serious: Yes (Death)
  Sender: FDA-Public Use
  Company Number: US-JNJFOC-20060402590

PATIENT
  Sex: Female
  Weight: 30 kg

DRUGS (7)
  1. REMICADE [Suspect]
     Indication: ANAEMIA
     Route: 042
  2. REMICADE [Suspect]
     Indication: GROWTH RETARDATION
     Route: 042
  3. REMICADE [Suspect]
     Indication: COLITIS
     Route: 042
  4. REMICADE [Suspect]
     Indication: CROHN'S DISEASE
     Route: 042
  5. SOLU-MEDROL [Concomitant]
     Indication: PREMEDICATION
     Route: 042
  6. BENADRYL [Concomitant]
     Indication: PREMEDICATION
     Route: 042
  7. TYLENOL [Concomitant]
     Indication: PREMEDICATION
     Route: 048

REACTIONS (1)
  - HAEMORRHAGIC STROKE [None]
